FAERS Safety Report 26056757 (Version 1)
Quarter: 2025Q4

REPORT INFORMATION
  Report Type: Spontaneous
  Country: US (occurrence: US)
  Receive Date: 20251118
  Receipt Date: 20251118
  Transmission Date: 20260119
  Serious: No
  Sender: CHATTEM
  Company Number: US-OPELLA-2025OHG032905

PATIENT
  Age: 35 Year
  Sex: Female

DRUGS (2)
  1. FEXOFENADINE [Suspect]
     Active Substance: FEXOFENADINE HYDROCHLORIDE
     Indication: Mastocytic leukaemia
     Route: 065
  2. IMATINIB [Concomitant]
     Active Substance: IMATINIB
     Indication: Mastocytic leukaemia
     Route: 065

REACTIONS (2)
  - Off label use [Unknown]
  - No adverse event [Unknown]
